FAERS Safety Report 4692470-9 (Version None)
Quarter: 2005Q2

REPORT INFORMATION
  Report Type: 
  Country: None (occurrence: None)
  Receive Date: 20050613
  Receipt Date: 20050321
  Transmission Date: 20051028
  Serious: Yes (Hospitalization, Other)
  Sender: FDA-Public Use
  Company Number: 2005-00417

PATIENT
  Age: 64 Year
  Sex: Male
  Weight: 54 kg

DRUGS (5)
  1. VELCADE [Suspect]
     Indication: MULTIPLE MYELOMA
     Dosage: INTRAVENOUS
     Route: 042
  2. SCIO-469 () [Suspect]
     Indication: MULTIPLE MYELOMA
     Dosage: 60.00 MG, TID, ORAL
     Route: 048
     Dates: start: 20050120, end: 20050501
  3. ARSENIC TRIOXIDE (ARSENIC TRIOXIDE) [Concomitant]
  4. ASCORBIC ACID [Concomitant]
  5. MELPHALAN [Concomitant]

REACTIONS (3)
  - FEBRILE NEUTROPENIA [None]
  - PERFORMANCE STATUS DECREASED [None]
  - RENAL FAILURE ACUTE [None]
